FAERS Safety Report 17954786 (Version 3)
Quarter: 2020Q3

REPORT INFORMATION
  Report Type: Spontaneous
  Country: BR (occurrence: BR)
  Receive Date: 20200629
  Receipt Date: 20200820
  Transmission Date: 20201103
  Serious: Yes (Death)
  Sender: FDA-Public Use
  Company Number: BR-ROCHE-2627595

PATIENT
  Sex: Male
  Weight: 78 kg

DRUGS (2)
  1. CHLOROQUINE. [Concomitant]
     Active Substance: CHLOROQUINE
     Indication: COVID-19
  2. ACTEMRA [Suspect]
     Active Substance: TOCILIZUMAB
     Indication: COVID-19
     Route: 065
     Dates: start: 20200413

REACTIONS (9)
  - Interleukin level increased [Fatal]
  - Respiratory gas exchange disorder [Fatal]
  - Off label use [Unknown]
  - Alanine aminotransferase increased [Fatal]
  - Septic shock [Fatal]
  - Acute kidney injury [Fatal]
  - Gamma-glutamyltransferase increased [Fatal]
  - Intentional product use issue [Unknown]
  - Aspartate aminotransferase increased [Fatal]

NARRATIVE: CASE EVENT DATE: 20200430
